FAERS Safety Report 19819065 (Version 1)
Quarter: 2021Q3

REPORT INFORMATION
  Report Type: Spontaneous
  Country: US (occurrence: US)
  Receive Date: 20210913
  Receipt Date: 20210913
  Transmission Date: 20211014
  Serious: Yes (Hospitalization, Other)
  Sender: FDA-Public Use
  Company Number: US-SAMSUNG BIOEPIS-SB-2021-21292

PATIENT
  Age: 71 Year
  Sex: Male

DRUGS (1)
  1. INFLIXIMAB [Suspect]
     Active Substance: INFLIXIMAB
     Indication: CROHN^S DISEASE
     Dosage: UNKNOWN
     Route: 065

REACTIONS (6)
  - Enterococcal bacteraemia [Recovering/Resolving]
  - Septic shock [Recovering/Resolving]
  - Immunodeficiency [Unknown]
  - Pneumonia [Recovering/Resolving]
  - Disseminated strongyloidiasis [Recovering/Resolving]
  - Strongyloidiasis [Recovering/Resolving]
